FAERS Safety Report 5158237-2 (Version None)
Quarter: 2006Q4

REPORT INFORMATION
  Report Type: 
  Country: None (occurrence: None)
  Receive Date: 20061128
  Receipt Date: 20061106
  Transmission Date: 20070319
  Serious: Yes (Death)
  Sender: FDA-Public Use
  Company Number: PHRM2006FR02987

PATIENT
  Age: 80 Year
  Sex: Female

DRUGS (10)
  1. TEGRETOL [Suspect]
     Dosage: 400 MG, QD
     Route: 048
     Dates: start: 20061101, end: 20061102
  2. TEGRETOL [Suspect]
     Dosage: 400 MG, QD
     Route: 048
     Dates: start: 20061103, end: 20061104
  3. TORENTAL [Concomitant]
     Dosage: 400 MG, BID
     Route: 048
     Dates: end: 20061031
  4. TORENTAL [Concomitant]
     Dosage: 400 MG, BID
     Route: 048
     Dates: start: 20061105
  5. ALDOMET [Concomitant]
     Dosage: 250 MG, QD
     Route: 048
  6. ACETAMINOPHEN W/ PROPOXYPHENE HCL [Concomitant]
     Dosage: 180/2400MG, QD
     Route: 048
  7. DIFFU K [Concomitant]
     Dosage: 600 MG, QD
     Route: 048
  8. LASIX [Concomitant]
     Dosage: 40 MG, QD
     Route: 048
  9. NOCTRAN [Concomitant]
     Dosage: 10 MG, QD
     Route: 048
  10. TRIATEC [Concomitant]
     Dosage: 2.5 MG, QD
     Route: 048

REACTIONS (6)
  - APATHY [None]
  - BRADYCARDIA [None]
  - BRONCHIAL DISORDER [None]
  - DEATH [None]
  - VOMITING [None]
  - WRONG DRUG ADMINISTERED [None]
